FAERS Safety Report 5828090-X (Version None)
Quarter: 2008Q3

REPORT INFORMATION
  Report Type: 
  Country: None (occurrence: None)
  Receive Date: 20080730
  Receipt Date: 20080110
  Transmission Date: 20090109
  Serious: No
  Sender: FDA-Public Use
  Company Number: A0702441A

PATIENT
  Age: 6 Year
  Sex: Female

DRUGS (3)
  1. RANITIDINE HCL [Suspect]
     Dosage: 1TSP PER DAY
     Route: 048
     Dates: start: 20070101
  2. ZANTAC [Suspect]
     Dosage: 1TSP TWICE PER DAY
     Route: 048
     Dates: start: 20060101, end: 20070101
  3. NO CONCURRENT MEDICATION [Concomitant]

REACTIONS (3)
  - DENTAL CARIES [None]
  - ENAMEL ANOMALY [None]
  - TOOTH DISCOLOURATION [None]
